APPROVED DRUG PRODUCT: OPCICON ONE-STEP
Active Ingredient: LEVONORGESTREL
Strength: 1.5MG
Dosage Form/Route: TABLET;ORAL
Application: A202635 | Product #001
Applicant: SUN PHARMACEUTICAL INDUSTRIES LTD
Approved: Sep 11, 2014 | RLD: No | RS: No | Type: OTC